FAERS Safety Report 6583382-4 (Version None)
Quarter: 2010Q1

REPORT INFORMATION
  Report Type: 
  Country: None (occurrence: None)
  Receive Date: 20100216
  Receipt Date: 20100204
  Transmission Date: 20100710
  Serious: Yes (Other)
  Sender: FDA-Public Use
  Company Number: US-PFIZER INC-2008011854

PATIENT
  Sex: Female
  Weight: 61.224 kg

DRUGS (7)
  1. ZOLOFT [Suspect]
     Indication: DEPRESSION
     Dosage: 50 MG, 1X/DAY
     Route: 048
     Dates: start: 20031209
  2. CYMBALTA [Suspect]
     Dates: start: 20070101
  3. LOPRESSOR [Concomitant]
     Indication: HYPERTENSION
  4. MULTI-VITAMINS [Concomitant]
  5. CALCIUM [Concomitant]
  6. IRON [Concomitant]
     Indication: ANAEMIA
  7. PROTONIX [Concomitant]
     Indication: PROPHYLAXIS

REACTIONS (10)
  - ANAEMIA [None]
  - BALANCE DISORDER [None]
  - CARBOHYDRATE ANTIGEN 125 INCREASED [None]
  - FATIGUE [None]
  - GAIT DISTURBANCE [None]
  - HYPERHIDROSIS [None]
  - MUSCLE SPASMS [None]
  - MUSCULAR WEAKNESS [None]
  - OVARIAN CANCER [None]
  - PELVIC MASS [None]
